FAERS Safety Report 4447983-1 (Version None)
Quarter: 2004Q3

REPORT INFORMATION
  Report Type: 
  Country: None (occurrence: None)
  Receive Date: 20040818
  Receipt Date: 20030624
  Transmission Date: 20050211
  Serious: Yes (Other)
  Sender: FDA-Public Use
  Company Number: 2003165392US

PATIENT
  Sex: Female

DRUGS (1)
  1. AZULFIDINE EN-TABS [Suspect]
     Dosage: ORAL
     Route: 048

REACTIONS (1)
  - HEPATOCELLULAR DAMAGE [None]
